FAERS Safety Report 6829592-X (Version None)
Quarter: 2010Q3

REPORT INFORMATION
  Report Type: 
  Country: None (occurrence: None)
  Receive Date: 20100709
  Receipt Date: 20070416
  Transmission Date: 20110219
  Serious: No
  Sender: FDA-Public Use
  Company Number: US-PFIZER INC-2007008379

PATIENT
  Sex: Female
  Weight: 44.91 kg

DRUGS (14)
  1. CHANTIX [Suspect]
     Indication: SMOKING CESSATION THERAPY
     Dates: start: 20070103, end: 20070101
  2. AZITHROMYCIN [Suspect]
     Indication: PYREXIA
     Dosage: DAILY
     Dates: start: 20070103, end: 20070101
  3. AZITHROMYCIN [Suspect]
     Indication: LYMPHADENOPATHY
  4. AZITHROMYCIN [Suspect]
     Indication: OROPHARYNGEAL PAIN
  5. ACETYLSALICYLIC ACID [Concomitant]
  6. VITAMINS [Concomitant]
  7. FLAGYL [Concomitant]
  8. METHADONE [Concomitant]
  9. IBUPROFEN [Concomitant]
  10. ACETYLSALICYLIC ACID [Concomitant]
  11. CLINDAMYCIN [Concomitant]
     Indication: SOFT TISSUE INFECTION
     Dates: start: 20060410, end: 20060101
  12. IBUPROFEN [Concomitant]
  13. NAPROXEN [Concomitant]
  14. ALEVE (CAPLET) [Concomitant]

REACTIONS (7)
  - BACK PAIN [None]
  - BREAST SWELLING [None]
  - FLUID RETENTION [None]
  - HYPERSENSITIVITY [None]
  - NAUSEA [None]
  - OEDEMA PERIPHERAL [None]
  - PAIN IN EXTREMITY [None]
